FAERS Safety Report 5656274-2 (Version None)
Quarter: 2008Q1

REPORT INFORMATION
  Report Type: 
  Country: None (occurrence: None)
  Receive Date: 20080309
  Receipt Date: 20070806
  Transmission Date: 20080703
  Serious: No
  Sender: FDA-Public Use
  Company Number: US-BAYER-200711934BCC

PATIENT
  Age: 65 Year
  Sex: Male
  Weight: 73 kg

DRUGS (8)
  1. ALEVE [Suspect]
     Indication: COUGH
     Dosage: AS USED: 440/220 MG  UNIT DOSE: 220 MG
     Route: 048
     Dates: start: 20070108, end: 20070401
  2. ALEVE [Suspect]
     Dosage: UNIT DOSE: 220 MG
     Route: 048
     Dates: start: 20070628
  3. NASAREL [Concomitant]
  4. ALBUTEROL [Concomitant]
     Route: 055
  5. OMEPRAZOLE [Concomitant]
  6. MUCINEX [Concomitant]
  7. ERY-TAB [Concomitant]
     Route: 048
  8. MOTRIN [Concomitant]
     Route: 048

REACTIONS (3)
  - ASTHENIA [None]
  - DIARRHOEA [None]
  - WEIGHT DECREASED [None]
